FAERS Safety Report 14023168 (Version 1)
Quarter: 2017Q3

REPORT INFORMATION
  Report Type: Spontaneous
  Country: JP (occurrence: JP)
  Receive Date: 20170929
  Receipt Date: 20170929
  Transmission Date: 20171128
  Serious: Yes (Other)
  Sender: FDA-Public Use
  Company Number: JP-SHIRE-JP201724006

PATIENT

DRUGS (4)
  1. CONCERTA [Concomitant]
     Active Substance: METHYLPHENIDATE HYDROCHLORIDE
     Indication: ATTENTION DEFICIT/HYPERACTIVITY DISORDER
  2. INTUNIV [Suspect]
     Active Substance: GUANFACINE HYDROCHLORIDE
     Indication: ATTENTION DEFICIT/HYPERACTIVITY DISORDER
     Dosage: 1 MG, 1X/DAY:QD
     Route: 048
     Dates: start: 20170714
  3. INTUNIV [Suspect]
     Active Substance: GUANFACINE HYDROCHLORIDE
     Dosage: 2 MG, 1X/DAY:QD
     Route: 048
     Dates: start: 20170728
  4. GASMOTIN [Concomitant]
     Active Substance: MOSAPRIDE CITRATE
     Indication: CHRONIC GASTRITIS

REACTIONS (5)
  - Glassy eyes [Unknown]
  - Blood pressure decreased [Recovered/Resolved]
  - Somnolence [Recovered/Resolved]
  - Peripheral coldness [Recovered/Resolved]
  - Chills [Not Recovered/Not Resolved]

NARRATIVE: CASE EVENT DATE: 2017
